FAERS Safety Report 18600646 (Version 1)
Quarter: 2020Q4

REPORT INFORMATION
  Report Type: Spontaneous
  Country: JP (occurrence: JP)
  Receive Date: 20201210
  Receipt Date: 20201210
  Transmission Date: 20210114
  Serious: Yes (Other)
  Sender: FDA-Public Use
  Company Number: JP-MYLANLABS-2020M1100933

PATIENT
  Age: 59 Year
  Sex: Female

DRUGS (4)
  1. METHOTREXATE. [Suspect]
     Active Substance: METHOTREXATE
     Indication: RHEUMATOID ARTHRITIS
     Dosage: SINCE LAST 13 YEARS
     Route: 065
  2. TACROLIMUS. [Suspect]
     Active Substance: TACROLIMUS
     Indication: RHEUMATOID ARTHRITIS
     Dosage: SINCE LAST 13 YEARS
     Route: 065
  3. ERYTHROMYCIN. [Concomitant]
     Active Substance: ERYTHROMYCIN
     Indication: ASTHMA
     Dosage: THERAPY INITIATED ONE YEAR PRIOR TO CURRENT PRESENTATION
     Route: 065
  4. IGURATIMOD [Suspect]
     Active Substance: IGURATIMOD
     Indication: RHEUMATOID ARTHRITIS
     Dosage: SINCE LAST 13 YEARS
     Route: 065

REACTIONS (3)
  - Cryptococcosis [Recovering/Resolving]
  - Tracheal disorder [Recovering/Resolving]
  - Tracheal stenosis [Recovering/Resolving]
